FAERS Safety Report 20983322 (Version 1)
Quarter: 2022Q2

REPORT INFORMATION
  Report Type: Spontaneous
  Country: JP (occurrence: JP)
  Receive Date: 20220620
  Receipt Date: 20220620
  Transmission Date: 20220721
  Serious: Yes (Other)
  Sender: FDA-Public Use
  Company Number: JP-SA-2019SA046617

PATIENT
  Age: 40 Year
  Sex: Male

DRUGS (2)
  1. HERBESSER [Suspect]
     Active Substance: DILTIAZEM HYDROCHLORIDE
     Indication: Product used for unknown indication
     Route: 065
  2. HERBESSER [Concomitant]
     Active Substance: DILTIAZEM HYDROCHLORIDE
     Indication: Product used for unknown indication
     Dosage: HERBESSER TABLETS30
     Dates: start: 201901

REACTIONS (2)
  - Cerebrovascular accident [Unknown]
  - Off label use [Unknown]
